FAERS Safety Report 5065896-1 (Version None)
Quarter: 2006Q3

REPORT INFORMATION
  Report Type: 
  Country: None (occurrence: None)
  Receive Date: 20060731
  Receipt Date: 20060207
  Transmission Date: 20061208
  Serious: Yes (Other)
  Sender: FDA-Public Use
  Company Number: 2006UW02278

PATIENT
  Age: 909 Month
  Sex: Female

DRUGS (1)
  1. NOLVADEX [Suspect]
     Indication: BREAST CANCER
     Route: 048
     Dates: start: 19981109, end: 20031208

REACTIONS (3)
  - FALL [None]
  - HUMERUS FRACTURE [None]
  - UPPER LIMB FRACTURE [None]
